FAERS Safety Report 6089239-X (Version None)
Quarter: 2009Q1

REPORT INFORMATION
  Report Type: 
  Country: None (occurrence: None)
  Receive Date: 20090224
  Receipt Date: 20090212
  Transmission Date: 20090719
  Serious: Yes (Other)
  Sender: FDA-Public Use
  Company Number: JP-PFIZER INC-2009170121

PATIENT

DRUGS (1)
  1. GABAPENTIN [Suspect]
     Indication: TEMPORAL LOBE EPILEPSY

REACTIONS (3)
  - COMPLEX PARTIAL SEIZURES [None]
  - DELUSION [None]
  - HALLUCINATION [None]
